FAERS Safety Report 5719587-1 (Version None)
Quarter: 2008Q2

REPORT INFORMATION
  Report Type: 
  Country: None (occurrence: None)
  Receive Date: 20080428
  Receipt Date: 20080417
  Transmission Date: 20081010
  Serious: No
  Sender: FDA-Public Use
  Company Number: B0486887A

PATIENT
  Age: 64 Year
  Sex: Male
  Weight: 108 kg

DRUGS (6)
  1. AVANDIA [Suspect]
     Dosage: 4MG PER DAY
     Route: 048
     Dates: start: 20060518, end: 20070502
  2. STAGID [Concomitant]
     Dosage: 2100MG PER DAY
     Route: 048
     Dates: start: 20011201
  3. GLIMEPIRIDE [Concomitant]
     Dosage: 4MG PER DAY
     Route: 048
     Dates: start: 20050901, end: 20070502
  4. PERINDOPRIL ERBUMINE [Concomitant]
     Indication: HYPERTENSION
     Dosage: 8MG PER DAY
     Route: 048
     Dates: start: 20040101
  5. EUPRESSYL [Concomitant]
     Indication: HYPERTENSION
     Dosage: 120MG PER DAY
     Route: 048
     Dates: start: 20040101
  6. PLAVIX [Concomitant]
     Dosage: 75MG PER DAY
     Route: 048
     Dates: start: 20050101

REACTIONS (6)
  - CARDIAC FAILURE [None]
  - DYSPNOEA [None]
  - OEDEMA [None]
  - OEDEMA PERIPHERAL [None]
  - PHLEBITIS [None]
  - WEIGHT INCREASED [None]
